FAERS Safety Report 13463600 (Version 2)
Quarter: 2017Q2

REPORT INFORMATION
  Report Type: Report from Study
  Country: US (occurrence: US)
  Receive Date: 20170420
  Receipt Date: 20170622
  Transmission Date: 20170830
  Serious: Yes (Hospitalization)
  Sender: FDA-Public Use
  Company Number: US-ACTELION-A-NJ2015-121699

PATIENT
  Age: 81 Year
  Sex: Female
  Weight: 89.8 kg

DRUGS (5)
  1. TRACLEER [Suspect]
     Active Substance: BOSENTAN
     Dosage: 125 MG, QD
     Route: 048
  2. COUMADIN [Concomitant]
     Active Substance: WARFARIN SODIUM
  3. TRACLEER [Suspect]
     Active Substance: BOSENTAN
     Indication: PULMONARY HYPERTENSION
     Dosage: 125 MG, BID
     Route: 048
     Dates: start: 20070731
  4. DILTIAZEM. [Concomitant]
     Active Substance: DILTIAZEM
  5. OFEV [Concomitant]
     Active Substance: NINTEDANIB

REACTIONS (9)
  - Nasal congestion [Unknown]
  - Diverticulitis [Unknown]
  - Dyspnoea exertional [Unknown]
  - Asthenia [Unknown]
  - Haematochezia [Unknown]
  - Blood count abnormal [Unknown]
  - Chest pain [Unknown]
  - Dyspnoea [Unknown]
  - Therapy non-responder [Unknown]
